FAERS Safety Report 4469218-6 (Version None)
Quarter: 2004Q4

REPORT INFORMATION
  Report Type: 
  Country: None (occurrence: None)
  Receive Date: 20041008
  Receipt Date: 20040927
  Transmission Date: 20050328
  Serious: Yes (Life-Threatening, Other)
  Sender: FDA-Public Use
  Company Number: FR-BRISTOL-MYERS SQUIBB COMPANY-12713046

PATIENT
  Age: 29 Year
  Sex: Male
  Weight: 60 kg

DRUGS (5)
  1. CEFAZOLIN [Suspect]
     Route: 042
     Dates: start: 20040803, end: 20040803
  2. CELOCURIN [Suspect]
     Route: 042
     Dates: start: 20040803, end: 20040803
  3. DIPRIVAN [Suspect]
     Route: 042
     Dates: start: 20040803, end: 20040803
  4. SUFENTA [Suspect]
     Route: 042
     Dates: start: 20040803, end: 20040803
  5. TRACRIUM [Concomitant]
     Dates: start: 20040803, end: 20040803

REACTIONS (9)
  - BRONCHOSPASM [None]
  - CARDIAC ARREST [None]
  - EMPHYSEMA [None]
  - GASTRITIS [None]
  - HYPERSENSITIVITY [None]
  - HYPOTENSION [None]
  - MYOCARDIAL INFARCTION [None]
  - PNEUMOTHORAX [None]
  - RESPIRATORY ARREST [None]
